FAERS Safety Report 19045553 (Version 1)
Quarter: 2021Q1

REPORT INFORMATION
  Report Type: Spontaneous
  Country: CA (occurrence: CA)
  Receive Date: 20210323
  Receipt Date: 20210323
  Transmission Date: 20210420
  Serious: Yes (Disabling, Other)
  Sender: FDA-Public Use
  Company Number: NVSC2021CA054592

PATIENT
  Sex: Male

DRUGS (2)
  1. BEOVU [Suspect]
     Active Substance: BROLUCIZUMAB-DBLL
     Dosage: UNK, Q4W
     Route: 031
     Dates: start: 20210121
  2. BEOVU [Suspect]
     Active Substance: BROLUCIZUMAB-DBLL
     Indication: AGE-RELATED MACULAR DEGENERATION
     Dosage: UNK, Q4W
     Route: 031
     Dates: start: 20201126

REACTIONS (5)
  - Retinal vascular occlusion [Not Recovered/Not Resolved]
  - Retinal vasculitis [Not Recovered/Not Resolved]
  - Blindness [Not Recovered/Not Resolved]
  - Visual field defect [Not Recovered/Not Resolved]
  - Retinal ischaemia [Unknown]
